FAERS Safety Report 22520526 (Version 1)
Quarter: 2023Q2

REPORT INFORMATION
  Report Type: Spontaneous
  Country: US (occurrence: None)
  Receive Date: 20230605
  Receipt Date: 20230605
  Transmission Date: 20230722
  Serious: No
  Sender: FDA-Public Use
  Company Number: None

PATIENT

DRUGS (1)
  1. PYRIDOSTIGMINE [Suspect]
     Active Substance: PYRIDOSTIGMINE

REACTIONS (4)
  - Gastric disorder [None]
  - Abdominal pain upper [None]
  - Product dispensing error [None]
  - Poor quality product administered [None]

NARRATIVE: CASE EVENT DATE: 20230420
